FAERS Safety Report 6772666-2 (Version None)
Quarter: 2010Q2

REPORT INFORMATION
  Report Type: 
  Country: None (occurrence: None)
  Receive Date: 20100616
  Receipt Date: 20090722
  Transmission Date: 20101027
  Serious: No
  Sender: FDA-Public Use
  Company Number: US-ASTRAZENECA-2009SE05628

PATIENT
  Age: 69 Year
  Sex: Male

DRUGS (12)
  1. PULMICORT RESPULES [Suspect]
     Route: 055
  2. O2 [Concomitant]
  3. IPATROPIUM [Concomitant]
  4. LIPITOR [Concomitant]
  5. ZETIA [Concomitant]
  6. FLOMAX [Concomitant]
  7. ADVAIR DISKUS 100/50 [Concomitant]
  8. PREDNISONE [Concomitant]
  9. COMBIVENT [Concomitant]
  10. METOPROLOL [Concomitant]
  11. BUPROPIUM XL [Concomitant]
  12. LISINOPRIL [Concomitant]

REACTIONS (2)
  - ABDOMINAL DISTENSION [None]
  - MEDICATION ERROR [None]
